FAERS Safety Report 5648351-7 (Version None)
Quarter: 2008Q1

REPORT INFORMATION
  Report Type: 
  Country: None (occurrence: None)
  Receive Date: 20080304
  Receipt Date: 20080220
  Transmission Date: 20080703
  Serious: Yes (Disabling)
  Sender: FDA-Public Use
  Company Number: GB-BAUSCH-2008BL000740

PATIENT
  Age: 66 Year
  Sex: Female

DRUGS (1)
  1. TROPICAMIDE [Suspect]
     Indication: EYE DISORDER
     Dates: start: 20080122

REACTIONS (3)
  - EYE PAIN [None]
  - HEADACHE [None]
  - MALAISE [None]
